FAERS Safety Report 5326641-5 (Version None)
Quarter: 2007Q2

REPORT INFORMATION
  Report Type: 
  Country: None (occurrence: None)
  Receive Date: 20070516
  Receipt Date: 20070507
  Transmission Date: 20071010
  Serious: Yes (Death)
  Sender: FDA-Public Use
  Company Number: CA-PFIZER INC-2007037700

PATIENT
  Sex: Male

DRUGS (2)
  1. VIAGRA [Suspect]
  2. ALL OTHER THERAPEUTIC PRODUCTS [Interacting]

REACTIONS (1)
  - DRUG INTERACTION [None]
